FAERS Safety Report 9103605 (Version 2)
Quarter: 2013Q1

REPORT INFORMATION
  Report Type: Spontaneous
  Country: DE (occurrence: DE)
  Receive Date: 20130218
  Receipt Date: 20130313
  Transmission Date: 20140127
  Serious: Yes (Life-Threatening, Hospitalization)
  Sender: FDA-Public Use
  Company Number: DE-GLAXOSMITHKLINE-D0078787A

PATIENT
  Age: 5 Year
  Sex: Male

DRUGS (2)
  1. VIANI [Suspect]
     Indication: ASTHMA
     Dosage: 150UG TWICE PER DAY
     Route: 055
     Dates: start: 201110
  2. SALBUTAMOL [Concomitant]
     Indication: ASTHMA
     Dosage: 1PUFF AS REQUIRED
     Route: 055

REACTIONS (6)
  - Hypoglycaemic unconsciousness [Recovered/Resolved]
  - Adrenal insufficiency [Not Recovered/Not Resolved]
  - Hypoglycaemia [Not Recovered/Not Resolved]
  - Blood cortisol decreased [Not Recovered/Not Resolved]
  - ACTH stimulation test abnormal [Unknown]
  - Fatigue [Not Recovered/Not Resolved]
